FAERS Safety Report 5306639-3 (Version None)
Quarter: 2007Q2

REPORT INFORMATION
  Report Type: 
  Country: None (occurrence: None)
  Receive Date: 20070424
  Receipt Date: 20070412
  Transmission Date: 20071010
  Serious: Yes (Other)
  Sender: FDA-Public Use
  Company Number: FR-PFIZER INC-2007029817

PATIENT
  Age: 35 Year
  Sex: Female

DRUGS (4)
  1. LYRICA [Suspect]
     Indication: NEURALGIA
  2. PARACETAMOL [Concomitant]
  3. TRAMADOL HCL [Concomitant]
  4. PIASCLEDINE [Concomitant]

REACTIONS (2)
  - FACE OEDEMA [None]
  - RASH ERYTHEMATOUS [None]
